FAERS Safety Report 10435608 (Version 1)
Quarter: 2014Q3

REPORT INFORMATION
  Report Type: Spontaneous
  Country: US (occurrence: US)
  Receive Date: 20140908
  Receipt Date: 20140908
  Transmission Date: 20150326
  Serious: No
  Sender: FDA-Public Use
  Company Number: US-009507513-1408USA015095

PATIENT
  Age: 21 Year
  Sex: Female
  Weight: 43.99 kg

DRUGS (2)
  1. VITAMINS (UNSPECIFIED) [Concomitant]
     Active Substance: VITAMINS
  2. IMPLANON [Suspect]
     Active Substance: ETONOGESTREL
     Indication: CONTRACEPTION
     Dosage: 1 ROD FOR 3 YEARS, SUBDERMAL UPPER RIGHT ARM
     Route: 059
     Dates: start: 20120220

REACTIONS (1)
  - Pain [Unknown]

NARRATIVE: CASE EVENT DATE: 20140820
